FAERS Safety Report 4500743-5 (Version None)
Quarter: 2004Q4

REPORT INFORMATION
  Report Type: 
  Country: None (occurrence: None)
  Receive Date: 20041109
  Receipt Date: 20041027
  Transmission Date: 20050328
  Serious: Yes (Hospitalization)
  Sender: FDA-Public Use
  Company Number: 2004-121777-NL

PATIENT
  Age: 57 Year
  Sex: Female

DRUGS (6)
  1. DEXAMETHASONE [Suspect]
     Indication: MULTIPLE MYELOMA
     Dosage: 40 MG DAILY ORAL
     Route: 048
     Dates: start: 20020703, end: 20021101
  2. MULTI-VITAMINS [Concomitant]
  3. FAMOTIDINE [Concomitant]
  4. SULFAMETHOXAZOLE/TRIMETHOPRIM ^DAK^ [Concomitant]
  5. OXYCODONE HCL [Concomitant]
  6. ACETAMINOPHEN W/ CODEINE [Concomitant]

REACTIONS (11)
  - ABDOMINAL PAIN [None]
  - ABNORMAL BEHAVIOUR [None]
  - ASTHENIA [None]
  - CHEST PAIN [None]
  - DYSPHAGIA [None]
  - IMPAIRED SELF-CARE [None]
  - MEMORY IMPAIRMENT [None]
  - MYALGIA [None]
  - ORTHOPNOEA [None]
  - PAIN [None]
  - TREATMENT NONCOMPLIANCE [None]
